FAERS Safety Report 11232819 (Version 3)
Quarter: 2020Q4

REPORT INFORMATION
  Report Type: Spontaneous
  Country: GB (occurrence: GB)
  Receive Date: 20150701
  Receipt Date: 20201119
  Transmission Date: 20210113
  Serious: Yes (Hospitalization, Other)
  Sender: FDA-Public Use
  Company Number: PHHY2015GB076665

PATIENT
  Age: 27 Year
  Sex: Female

DRUGS (1)
  1. PARACETAMOL [Suspect]
     Active Substance: ACETAMINOPHEN
     Indication: INTENTIONAL OVERDOSE
     Dosage: 11 G (196 MG/KG), THE PATIENT TOOK OVERDOSE
     Route: 048

REACTIONS (5)
  - Intentional overdose [Recovering/Resolving]
  - Jaundice [Recovered/Resolved]
  - Blood bilirubin increased [Recovering/Resolving]
  - Anaemia [Unknown]
  - Haemolysis [Recovered/Resolved]
